FAERS Safety Report 12194743 (Version 1)
Quarter: 2016Q1

REPORT INFORMATION
  Report Type: Spontaneous
  Country: US (occurrence: None)
  Receive Date: 20160318
  Receipt Date: 20160318
  Transmission Date: 20160526
  Serious: Yes (Hospitalization)
  Sender: FDA-Public Use
  Company Number: None

PATIENT
  Age: 38 Year
  Sex: Female
  Weight: 70.5 kg

DRUGS (1)
  1. VANCOMYCIN 1GM MYLAN [Suspect]
     Active Substance: VANCOMYCIN
     Indication: SEPSIS
     Route: 042
     Dates: start: 20160222, end: 20160307

REACTIONS (2)
  - Pyrexia [None]
  - Throat tightness [None]

NARRATIVE: CASE EVENT DATE: 20160307
